FAERS Safety Report 22281157 (Version 1)
Quarter: 2023Q2

REPORT INFORMATION
  Report Type: Spontaneous
  Country: DK (occurrence: DK)
  Receive Date: 20230504
  Receipt Date: 20230504
  Transmission Date: 20230722
  Serious: Yes (Hospitalization)
  Sender: FDA-Public Use
  Company Number: None

PATIENT
  Age: 92 Year
  Sex: Female
  Weight: 50 kg

DRUGS (1)
  1. XARELTO [Suspect]
     Active Substance: RIVAROXABAN
     Indication: Thrombosis prophylaxis
     Dosage: 15 MG, QD
     Route: 048
     Dates: start: 2015, end: 20230404

REACTIONS (5)
  - Subdural haematoma [Unknown]
  - Facial paresis [Unknown]
  - Extradural haematoma [Not Recovered/Not Resolved]
  - Dysarthria [Unknown]
  - Subarachnoid haemorrhage [Not Recovered/Not Resolved]

NARRATIVE: CASE EVENT DATE: 20230404
